FAERS Safety Report 21707798 (Version 2)
Quarter: 2022Q4

REPORT INFORMATION
  Report Type: Spontaneous
  Country: CZ (occurrence: CZ)
  Receive Date: 20221209
  Receipt Date: 20221228
  Transmission Date: 20230112
  Serious: Yes (Hospitalization)
  Sender: FDA-Public Use
  Company Number: CZ-MYLANLABS-2022M1137828

PATIENT
  Sex: Male

DRUGS (10)
  1. INSULIN GLARGINE [Suspect]
     Active Substance: INSULIN GLARGINE
     Indication: Hyperammonaemia
     Dosage: UNK
     Route: 065
  2. ARGININE [Suspect]
     Active Substance: ARGININE
     Indication: Hyperammonaemia
     Dosage: UNK; INTRAVENOUS (NOT SPECIFIED)
     Route: 042
  3. ARGININE [Suspect]
     Active Substance: ARGININE
     Indication: Ornithine transcarbamoylase deficiency
  4. CYANOCOBALAMIN [Suspect]
     Active Substance: CYANOCOBALAMIN
     Indication: Hyperammonaemia
     Dosage: UNK
     Route: 065
  5. CYANOCOBALAMIN [Suspect]
     Active Substance: CYANOCOBALAMIN
     Indication: Ornithine transcarbamoylase deficiency
  6. DEXTROSE [Suspect]
     Active Substance: DEXTROSE
     Indication: Hyperammonaemia
     Dosage: UNK
     Route: 042
  7. SODIUM BENZOATE [Suspect]
     Active Substance: SODIUM BENZOATE
     Indication: Hyperammonaemia
     Dosage: UNK; INTRAVENOUS (NOT SPECIFIED)
     Route: 042
  8. SODIUM BENZOATE [Suspect]
     Active Substance: SODIUM BENZOATE
     Indication: Ornithine transcarbamoylase deficiency
  9. LEVOCARNITINE [Suspect]
     Active Substance: LEVOCARNITINE
     Indication: Hyperammonaemia
     Dosage: UNK; INTRAVENOUS (NOT SPECIFIED)
     Route: 042
  10. LEVOCARNITINE [Suspect]
     Active Substance: LEVOCARNITINE
     Indication: Ornithine transcarbamoylase deficiency

REACTIONS (2)
  - Drug ineffective for unapproved indication [Unknown]
  - Off label use [Unknown]
